FAERS Safety Report 14293806 (Version 1)
Quarter: 2017Q4

REPORT INFORMATION
  Report Type: Spontaneous
  Country: JP (occurrence: JP)
  Receive Date: 20171216
  Receipt Date: 20171216
  Transmission Date: 20180321
  Serious: Yes (Other)
  Sender: FDA-Public Use
  Company Number: JP-ACCORD-061896

PATIENT
  Age: 70 Year
  Sex: Male

DRUGS (1)
  1. FUROSEMIDE. [Suspect]
     Active Substance: FUROSEMIDE
     Indication: CARDIAC FAILURE

REACTIONS (5)
  - Atrial fibrillation [Unknown]
  - Vitamin B1 decreased [Recovered/Resolved]
  - Cardiac tamponade [Unknown]
  - Shock [Recovered/Resolved]
  - Condition aggravated [Recovered/Resolved]
